FAERS Safety Report 5674971-X (Version None)
Quarter: 2008Q1

REPORT INFORMATION
  Report Type: 
  Country: None (occurrence: None)
  Receive Date: 20080320
  Receipt Date: 20080314
  Transmission Date: 20080703
  Serious: Yes (Hospitalization)
  Sender: FDA-Public Use
  Company Number: GB-PURDUE-GBR_2008_0003836

PATIENT
  Age: 52 Year
  Sex: Male

DRUGS (10)
  1. MS CR TABLET [Suspect]
     Indication: CANCER PAIN
     Dosage: 690 MG, BID
     Route: 048
  2. MS IR TABLET [Suspect]
     Indication: CANCER PAIN
     Dosage: 3000 MG, UNK
     Route: 048
  3. OXYCODONE HYDROCHLORIDE [Suspect]
     Indication: CANCER PAIN
     Dosage: 500 MG, DAILY
     Route: 058
  4. OXYCODONE HYDROCHLORIDE [Suspect]
     Dosage: 1080 MG, DAILY
     Route: 058
  5. OXYCODONE HYDROCHLORIDE [Suspect]
     Dosage: 400 MG, DAILY
     Route: 058
  6. GABAPENTIN [Concomitant]
     Route: 065
  7. PARACETAMOL [Concomitant]
     Route: 065
  8. DICLOFENAC SODIUM [Concomitant]
     Route: 065
  9. DIAZEPAM [Concomitant]
     Route: 065
  10. PAMIDRONIC ACID [Concomitant]
     Route: 065

REACTIONS (7)
  - AGITATION [None]
  - ALLODYNIA [None]
  - BACK PAIN [None]
  - MYOCLONUS [None]
  - PAIN [None]
  - SOMNOLENCE [None]
  - URINARY RETENTION [None]
